FAERS Safety Report 16663707 (Version 8)
Quarter: 2019Q4

REPORT INFORMATION
  Report Type: Report from Study
  Country: ES (occurrence: ES)
  Receive Date: 20190802
  Receipt Date: 20191231
  Transmission Date: 20200122
  Serious: Yes (Hospitalization, Other)
  Sender: FDA-Public Use
  Company Number: ES-SHIRE-ES201921801

PATIENT

DRUGS (10)
  1. TEDUGLUTIDE [Suspect]
     Active Substance: TEDUGLUTIDE
     Dosage: 0.38 MILLILITER
     Route: 058
     Dates: start: 20190130
  2. SANDOSTATIN [Concomitant]
     Active Substance: OCTREOTIDE ACETATE
     Indication: PRODUCT USED FOR UNKNOWN INDICATION
  3. FERROPLEX [Concomitant]
     Indication: PRODUCT USED FOR UNKNOWN INDICATION
  4. TEDUGLUTIDE [Suspect]
     Active Substance: TEDUGLUTIDE
     Dosage: 0.38 MILLILITER
     Route: 058
  5. OMEPRAZOLE. [Concomitant]
     Active Substance: OMEPRAZOLE
     Indication: PRODUCT USED FOR UNKNOWN INDICATION
  6. TEDUGLUTIDE [Suspect]
     Active Substance: TEDUGLUTIDE
     Dosage: UNK
     Route: 065
     Dates: start: 20191219
  7. TEDUGLUTIDE [Suspect]
     Active Substance: TEDUGLUTIDE
     Indication: CROHN^S DISEASE
     Dosage: 0.36 MILLIGRAM PER MILLILITRE, 1X/DAY:QD
     Route: 058
     Dates: start: 20190130
  8. ORFIDAL [Concomitant]
     Active Substance: LORAZEPAM
     Indication: PRODUCT USED FOR UNKNOWN INDICATION
  9. TEDUGLUTIDE [Suspect]
     Active Substance: TEDUGLUTIDE
     Indication: SHORT-BOWEL SYNDROME
     Dosage: 1X/DAY:QD
     Route: 058
  10. TEDUGLUTIDE [Suspect]
     Active Substance: TEDUGLUTIDE
     Dosage: 0.36 MILLILITER, 1X/DAY:QD
     Route: 058
     Dates: start: 20190130

REACTIONS (21)
  - Phlebitis [Unknown]
  - Hypersomnia [Not Recovered/Not Resolved]
  - Weight decreased [Recovered/Resolved]
  - Injection site mass [Unknown]
  - Abnormal faeces [Not Recovered/Not Resolved]
  - Urine output decreased [Recovered/Resolved]
  - Gastric disorder [Unknown]
  - Stoma site irritation [Not Recovered/Not Resolved]
  - Incorrect dose administered [Recovered/Resolved]
  - Sepsis [Unknown]
  - Device related infection [Recovered/Resolved]
  - Dermatitis contact [Not Recovered/Not Resolved]
  - Stoma complication [Recovered/Resolved]
  - Frequent bowel movements [Recovered/Resolved]
  - Pruritus [Recovered/Resolved]
  - Polyuria [Recovered/Resolved]
  - Insomnia [Recovered/Resolved]
  - Urinary tract infection [Unknown]
  - Fluid intake reduced [Recovered/Resolved]
  - Oropharyngeal pain [Recovered/Resolved]
  - Pyelonephritis [Unknown]

NARRATIVE: CASE EVENT DATE: 20190130
